FAERS Safety Report 24799656 (Version 2)
Quarter: 2025Q1

REPORT INFORMATION
  Report Type: Report from Study
  Country: US (occurrence: US)
  Receive Date: 20250102
  Receipt Date: 20250225
  Transmission Date: 20250408
  Serious: Yes (Hospitalization, Other)
  Sender: TAKEDA
  Company Number: US-TAKEDA-2023TUS010754

PATIENT
  Age: 35 Year
  Sex: Female
  Weight: 74 kg

DRUGS (13)
  1. HUMAN IMMUNOGLOBULIN G\HYALURONIDASE RECOMBINANT HUMAN [Suspect]
     Active Substance: HUMAN IMMUNOGLOBULIN G\HYALURONIDASE (HUMAN RECOMBINANT)
     Indication: Immunodeficiency common variable
     Dosage: 30 GRAM, Q4WEEKS
     Dates: start: 20230109
  2. HUMAN IMMUNOGLOBULIN G\HYALURONIDASE RECOMBINANT HUMAN [Suspect]
     Active Substance: HUMAN IMMUNOGLOBULIN G\HYALURONIDASE (HUMAN RECOMBINANT)
     Dosage: 40 GRAM, Q4WEEKS
  3. ACETAMINOPHEN [Concomitant]
     Active Substance: ACETAMINOPHEN
  4. EPINEPHRINE [Concomitant]
     Active Substance: EPINEPHRINE
  5. SODIUM CHLORIDE [Concomitant]
     Active Substance: SODIUM CHLORIDE
  6. TRELEGY ELLIPTA [Concomitant]
     Active Substance: FLUTICASONE FUROATE\UMECLIDINIUM BROMIDE\VILANTEROL TRIFENATATE
  7. BIOTIN [Concomitant]
     Active Substance: BIOTIN
  8. B ACTIVE [Concomitant]
  9. LIDOCAINE [Concomitant]
     Active Substance: LIDOCAINE
  10. LIDOCAINE AND PRILOCAINE [Concomitant]
     Active Substance: LIDOCAINE\PRILOCAINE
  11. MONTELUKAST SODIUM [Concomitant]
     Active Substance: MONTELUKAST SODIUM
  12. DIPHENHYDRAMINE [Concomitant]
     Active Substance: DIPHENHYDRAMINE
  13. BELSOMRA [Concomitant]
     Active Substance: SUVOREXANT

REACTIONS (16)
  - Sialoadenitis [Unknown]
  - Gastrointestinal haemorrhage [Unknown]
  - Dermatitis contact [Unknown]
  - Nasopharyngitis [Unknown]
  - Upper respiratory tract infection [Unknown]
  - Sinusitis [Unknown]
  - Psoriasis [Unknown]
  - Infusion site discharge [Unknown]
  - Urinary tract infection [Unknown]
  - Respiratory tract infection [Unknown]
  - Insurance issue [Unknown]
  - Puncture site bruise [Unknown]
  - Product dose omission issue [Unknown]
  - Product use issue [Unknown]
  - Incorrect product administration duration [Unknown]
  - Infusion site discolouration [Unknown]

NARRATIVE: CASE EVENT DATE: 20230601
